FAERS Safety Report 5680663-3 (Version None)
Quarter: 2008Q1

REPORT INFORMATION
  Report Type: 
  Country: None (occurrence: None)
  Receive Date: 20080326
  Receipt Date: 20070419
  Transmission Date: 20080703
  Serious: No
  Sender: FDA-Public Use
  Company Number: US-BAUSCH-2007BL001283

PATIENT
  Age: 79 Year
  Sex: Female

DRUGS (9)
  1. LOTEMAX [Suspect]
     Indication: BLEPHARITIS
     Route: 047
     Dates: start: 20070222, end: 20070314
  2. LOTEMAX [Suspect]
     Indication: OFF LABEL USE
     Route: 047
     Dates: start: 20070222, end: 20070314
  3. LOTEMAX [Suspect]
     Route: 047
     Dates: start: 20070315, end: 20070329
  4. LOTEMAX [Suspect]
     Route: 047
     Dates: start: 20070315, end: 20070329
  5. LOTEMAX [Suspect]
     Route: 047
     Dates: start: 20070330
  6. LOTEMAX [Suspect]
     Route: 047
     Dates: start: 20070330
  7. DOXYCYCLINE [Suspect]
     Indication: BLEPHARITIS
     Route: 048
     Dates: start: 20070222, end: 20070308
  8. DOXYCYCLINE [Suspect]
     Route: 048
     Dates: start: 20070327, end: 20070409
  9. ERYTHROMYCIN [Concomitant]
     Indication: BLEPHARITIS
     Route: 047
     Dates: start: 20070301

REACTIONS (5)
  - AGEUSIA [None]
  - DYSGEUSIA [None]
  - DYSPEPSIA [None]
  - LETHARGY [None]
  - WEIGHT DECREASED [None]
